FAERS Safety Report 12989367 (Version 1)
Quarter: 2016Q4

REPORT INFORMATION
  Report Type: Spontaneous
  Country: US (occurrence: US)
  Receive Date: 20161201
  Receipt Date: 20161201
  Transmission Date: 20170207
  Serious: No
  Sender: FDA-Public Use
  Company Number: US-009507513-1611USA001757

PATIENT
  Age: 84 Year
  Sex: Male

DRUGS (1)
  1. DIAZOXIDE [Suspect]
     Active Substance: DIAZOXIDE
     Indication: INSULINOMA
     Dosage: UNK
     Route: 048

REACTIONS (1)
  - Drug intolerance [Unknown]
